FAERS Safety Report 13774644 (Version 1)
Quarter: 2017Q3

REPORT INFORMATION
  Report Type: Spontaneous
  Country: US (occurrence: US)
  Receive Date: 20170720
  Receipt Date: 20170720
  Transmission Date: 20171127
  Serious: Yes (Life-Threatening, Hospitalization, Disabling, Other)
  Sender: FDA-Public Use
  Company Number: None

PATIENT
  Age: 48 Year
  Sex: Female
  Weight: 81 kg

DRUGS (7)
  1. LORAZEPAM. [Suspect]
     Active Substance: LORAZEPAM
     Indication: INSOMNIA
     Dosage: ?          OTHER STRENGTH:MG/MG;QUANTITY:1 TABLET(S);?
     Route: 048
     Dates: start: 20040701, end: 20140701
  2. GABAPENTIN. [Concomitant]
     Active Substance: GABAPENTIN
  3. GINGER ROOT [Concomitant]
     Active Substance: GINGER
  4. LORAZEPAM. [Suspect]
     Active Substance: LORAZEPAM
     Indication: ANXIETY
     Dosage: ?          OTHER STRENGTH:MG/MG;QUANTITY:1 TABLET(S);?
     Route: 048
     Dates: start: 20040701, end: 20140701
  5. OMEPRAZOLE. [Concomitant]
     Active Substance: OMEPRAZOLE
  6. DIAZEPAM. [Concomitant]
     Active Substance: DIAZEPAM
  7. LAMOTRIGINE. [Concomitant]
     Active Substance: LAMOTRIGINE

REACTIONS (23)
  - Hyperhidrosis [None]
  - Agoraphobia [None]
  - Obsessive-compulsive disorder [None]
  - Social anxiety disorder [None]
  - Psychotic disorder [None]
  - Vomiting projectile [None]
  - Menorrhagia [None]
  - Mania [None]
  - Panic attack [None]
  - Anger [None]
  - Hostility [None]
  - Intentional self-injury [None]
  - Fear [None]
  - Drug withdrawal syndrome [None]
  - Pancreatitis [None]
  - Chills [None]
  - Cognitive disorder [None]
  - Aggression [None]
  - Weight decreased [None]
  - Phobia [None]
  - Inappropriate schedule of drug administration [None]
  - Disturbance in attention [None]
  - Suicide attempt [None]

NARRATIVE: CASE EVENT DATE: 20101010
